FAERS Safety Report 12402842 (Version 2)
Quarter: 2016Q2

REPORT INFORMATION
  Report Type: Report from Study
  Country: US (occurrence: US)
  Receive Date: 20160525
  Receipt Date: 20160614
  Transmission Date: 20160815
  Serious: Yes (Death, Other)
  Sender: FDA-Public Use
  Company Number: US-009507513-1605USA011011

PATIENT

DRUGS (1)
  1. KEYTRUDA [Suspect]
     Active Substance: PEMBROLIZUMAB
     Dosage: 100 MG, Q3W
     Route: 042
     Dates: start: 20160512

REACTIONS (1)
  - Death [Fatal]

NARRATIVE: CASE EVENT DATE: 20160520
